FAERS Safety Report 24010502 (Version 1)
Quarter: 2024Q2

REPORT INFORMATION
  Report Type: Spontaneous
  Country: US (occurrence: None)
  Receive Date: 20240624
  Receipt Date: 20240624
  Transmission Date: 20240715
  Serious: Yes (Other)
  Sender: FDA-Public Use
  Company Number: None

PATIENT
  Age: 47 Year
  Sex: Female

DRUGS (12)
  1. BELBUCA [Suspect]
     Active Substance: BUPRENORPHINE HYDROCHLORIDE
     Indication: Pain
     Dosage: FREQUENCY : EVERY 12 HOURS?OTHER ROUTE : PUT INSIDE MOUTH ON CHEEK?
     Route: 050
     Dates: start: 20220301, end: 20240624
  2. EMGALITY [Concomitant]
     Active Substance: GALCANEZUMAB-GNLM
  3. XYZAL [Concomitant]
     Active Substance: LEVOCETIRIZINE DIHYDROCHLORIDE
  4. SINGULAIR [Concomitant]
     Active Substance: MONTELUKAST SODIUM
  5. UNSPECIFIED INGREDIENT [Concomitant]
     Active Substance: UNSPECIFIED INGREDIENT
  6. KETAMINE [Concomitant]
     Active Substance: KETAMINE
  7. LINZESS [Concomitant]
     Active Substance: LINACLOTIDE
  8. RELISTOR [Concomitant]
     Active Substance: METHYLNALTREXONE BROMIDE
  9. CYMBALTA [Concomitant]
     Active Substance: DULOXETINE HYDROCHLORIDE
  10. VALIUM [Concomitant]
     Active Substance: DIAZEPAM
  11. ROBAXIN [Concomitant]
     Active Substance: METHOCARBAMOL
  12. MIRTAZAPINE [Concomitant]
     Active Substance: MIRTAZAPINE

REACTIONS (2)
  - Dental caries [None]
  - Loose tooth [None]

NARRATIVE: CASE EVENT DATE: 20240613
